FAERS Safety Report 4978158-5 (Version None)
Quarter: 2006Q2

REPORT INFORMATION
  Report Type: 
  Country: None (occurrence: None)
  Receive Date: 20060414
  Receipt Date: 20060403
  Transmission Date: 20061013
  Serious: No
  Sender: FDA-Public Use
  Company Number: 100106001/271 AE

PATIENT
  Sex: Male

DRUGS (1)
  1. TESTIM [Suspect]
     Dosage: TRANSDERMAL
     Route: 062
     Dates: start: 20040101

REACTIONS (3)
  - APPLICATION SITE PAIN [None]
  - BURKITT'S LYMPHOMA [None]
  - NEOPLASM MALIGNANT [None]
